FAERS Safety Report 10529857 (Version 1)
Quarter: 2014Q4

REPORT INFORMATION
  Report Type: Spontaneous
  Country: US (occurrence: None)
  Receive Date: 20141020
  Receipt Date: 20141020
  Transmission Date: 20150528
  Serious: No
  Sender: FDA-Public Use
  Company Number: None

PATIENT
  Age: 72 Year
  Sex: Female

DRUGS (2)
  1. FORTEO [Suspect]
     Active Substance: TERIPARATIDE
     Indication: FRACTURE
     Dosage: 1 INJECTION,  ONCE DAILY, SQ INJECTION
     Dates: start: 20131120, end: 20141017
  2. FORTEO [Suspect]
     Active Substance: TERIPARATIDE
     Indication: OSTEOPOROSIS
     Dosage: 1 INJECTION,  ONCE DAILY, SQ INJECTION
     Dates: start: 20131120, end: 20141017

REACTIONS (6)
  - Injection site bruising [None]
  - Injection site erythema [None]
  - Pruritus [None]
  - Swelling [None]
  - Erythema [None]
  - Arthralgia [None]

NARRATIVE: CASE EVENT DATE: 20141017
